FAERS Safety Report 4353532-9 (Version None)
Quarter: 2004Q2

REPORT INFORMATION
  Report Type: 
  Country: None (occurrence: None)
  Receive Date: 20040430
  Receipt Date: 20040420
  Transmission Date: 20050107
  Serious: Yes (Hospitalization, Other)
  Sender: FDA-Public Use
  Company Number: HQWYE574222APR04

PATIENT
  Age: 45 Year
  Sex: Female

DRUGS (9)
  1. RAPAMUNE [Suspect]
     Indication: PROPHYLAXIS AGAINST TRANSPLANT REJECTION
     Dosage: 5 MG 1X PER 1 DAY
  2. RAPAMUNE [Suspect]
     Dosage: 2 MG 1X PER 1 DAY
  3. PREDNISONE [Concomitant]
  4. FUROSEMIDE [Concomitant]
  5. DOXAZOSIN [Concomitant]
  6. DILTIAZEM [Concomitant]
  7. PANTOPRAZOLE [Concomitant]
  8. LEVOFLOXACIN [Concomitant]
  9. AZATHIOPRINE [Concomitant]

REACTIONS (20)
  - BLOOD PRESSURE DIASTOLIC DECREASED [None]
  - BLOOD UREA INCREASED [None]
  - COUGH [None]
  - CREPITATIONS [None]
  - DIALYSIS [None]
  - DYSPNOEA [None]
  - HAEMOGLOBIN DECREASED [None]
  - HAEMOPTYSIS [None]
  - HEART RATE INCREASED [None]
  - HYPERHIDROSIS [None]
  - HYPOXIA [None]
  - PCO2 DECREASED [None]
  - PH BODY FLUID INCREASED [None]
  - PNEUMOCYSTIS CARINII INFECTION [None]
  - PO2 DECREASED [None]
  - PULMONARY ALVEOLAR HAEMORRHAGE [None]
  - PULMONARY TOXICITY [None]
  - PYREXIA [None]
  - RED BLOOD CELL SEDIMENTATION RATE INCREASED [None]
  - RESPIRATORY RATE INCREASED [None]
